FAERS Safety Report 24892922 (Version 1)
Quarter: 2025Q1

REPORT INFORMATION
  Report Type: Spontaneous
  Country: US (occurrence: US)
  Receive Date: 20250128
  Receipt Date: 20250128
  Transmission Date: 20250409
  Serious: Yes (Hospitalization)
  Sender: STRIDES
  Company Number: US-STRIDES ARCOLAB LIMITED-2024SP012779

PATIENT
  Age: 58 Year
  Sex: Male

DRUGS (5)
  1. VANCOMYCIN [Suspect]
     Active Substance: VANCOMYCIN
     Indication: Lung disorder
     Route: 065
  2. AZITHROMYCIN [Suspect]
     Active Substance: AZITHROMYCIN
     Indication: Lung disorder
     Route: 065
  3. CEFEPIME [Suspect]
     Active Substance: CEFEPIME HYDROCHLORIDE
     Indication: Lung disorder
     Route: 065
  4. HEROIN [Concomitant]
     Active Substance: DIAMORPHINE
     Indication: Product used for unknown indication
     Route: 042
  5. COCAINE [Concomitant]
     Active Substance: COCAINE
     Indication: Product used for unknown indication
     Route: 042

REACTIONS (2)
  - Therapy non-responder [Unknown]
  - Off label use [Unknown]
